FAERS Safety Report 5675309-4 (Version None)
Quarter: 2008Q2

REPORT INFORMATION
  Report Type: 
  Country: None (occurrence: None)
  Receive Date: 20080307
  Receipt Date: 20071009
  Transmission Date: 20081010
  Serious: Yes (Disabling, Other)
  Sender: FDA-Public Use
  Company Number: US200708006835

PATIENT
  Age: 55 Year
  Sex: Female
  Weight: 49 kg

DRUGS (12)
  1. GEMZAR [Suspect]
     Indication: PANCREATIC CARCINOMA
     Dosage: 1 G
  2. TARCEVA [Concomitant]
  3. OXYCODONE HCL [Concomitant]
  4. OXYCONTIN [Concomitant]
  5. MORPHINE SULFATE [Concomitant]
  6. REGLAN (METOCLOPRAMID HYDROCHLORIDE) [Concomitant]
  7. MEGACE [Concomitant]
  8. KYTRIL /01178101/ (GRANISETRON) [Concomitant]
  9. DULCOLAX [Concomitant]
  10. GAS X (SIMETICONE) [Concomitant]
  11. NORVASC [Concomitant]
  12. ALLEGRA [Concomitant]

REACTIONS (9)
  - ALANINE AMINOTRANSFERASE INCREASED [None]
  - ASPARTATE AMINOTRANSFERASE INCREASED [None]
  - BLOOD ALKALINE PHOSPHATASE INCREASED [None]
  - BLOOD GLUCOSE INCREASED [None]
  - ERYTHEMA [None]
  - GAMMA-GLUTAMYLTRANSFERASE INCREASED [None]
  - LIMB DISCOMFORT [None]
  - NEUROPATHY PERIPHERAL [None]
  - OEDEMA PERIPHERAL [None]
